FAERS Safety Report 7018168-X (Version None)
Quarter: 2010Q3

REPORT INFORMATION
  Report Type: 
  Country: None (occurrence: None)
  Receive Date: 20100928
  Receipt Date: 20100920
  Transmission Date: 20110219
  Serious: Yes (Hospitalization)
  Sender: FDA-Public Use
  Company Number: DE-SANOFI-AVENTIS-A04200900640

PATIENT
  Age: 83 Year
  Sex: Female

DRUGS (5)
  1. PLAVIX [Suspect]
     Indication: PERIPHERAL ARTERIAL OCCLUSIVE DISEASE
     Dosage: UNIT DOSE: 75 MG
     Route: 048
     Dates: start: 20040101, end: 20081009
  2. BISOPROLOL FUMARATE [Concomitant]
     Dosage: UNIT DOSE: 2.5 MG
     Route: 048
  3. JATROSOM N [Concomitant]
     Dosage: DOSE TEXT: 20-10-0 MG DAILY
     Route: 048
  4. OMEPRAZOLE [Concomitant]
     Dosage: UNIT DOSE: 20 MG
     Route: 048
  5. QUILONUM [Concomitant]
     Dosage: UNIT DOSE: 225 MG
     Route: 048

REACTIONS (5)
  - ABDOMINAL PAIN [None]
  - ABDOMINAL PAIN UPPER [None]
  - DECREASED APPETITE [None]
  - GASTRITIS [None]
  - NAUSEA [None]
